FAERS Safety Report 25883938 (Version 1)
Quarter: 2025Q4

REPORT INFORMATION
  Report Type: Report from Study
  Country: EU (occurrence: EU)
  Receive Date: 20251006
  Receipt Date: 20251006
  Transmission Date: 20260117
  Serious: Yes (Other)
  Sender: ABBVIE
  Company Number: EU-ABBVIE-6483700

PATIENT

DRUGS (2)
  1. VENETOCLAX [Suspect]
     Active Substance: VENETOCLAX
     Indication: T-cell lymphoma
     Route: 048
     Dates: end: 20250903
  2. NAVITOCLAX [Suspect]
     Active Substance: NAVITOCLAX
     Indication: T-cell lymphoma
     Route: 065

REACTIONS (1)
  - T-cell type acute leukaemia [Unknown]
